FAERS Safety Report 17155576 (Version 3)
Quarter: 2020Q1

REPORT INFORMATION
  Report Type: Spontaneous
  Country: BR (occurrence: BR)
  Receive Date: 20191215
  Receipt Date: 20200210
  Transmission Date: 20200409
  Serious: Yes (Life-Threatening, Other)
  Sender: FDA-Public Use
  Company Number: BR-AMGEN-BRASP2019208464

PATIENT
  Age: 69 Year
  Sex: Male

DRUGS (1)
  1. ENBREL [Suspect]
     Active Substance: ETANERCEPT
     Indication: PRODUCT USED FOR UNKNOWN INDICATION
     Dosage: UNK
     Route: 065
     Dates: start: 201802, end: 201807

REACTIONS (11)
  - Respiratory failure [Unknown]
  - Hypoacusis [Unknown]
  - Decreased immune responsiveness [Unknown]
  - Asthenia [Unknown]
  - Chronic obstructive pulmonary disease [Unknown]
  - Tuberculosis [Unknown]
  - Gait inability [Unknown]
  - Pneumonia [Unknown]
  - Condition aggravated [Unknown]
  - Lung abscess [Unknown]
  - Fibrosis [Unknown]
